FAERS Safety Report 4536623-9 (Version None)
Quarter: 2004Q4

REPORT INFORMATION
  Report Type: 
  Country: None (occurrence: None)
  Receive Date: 20041223
  Receipt Date: 20041129
  Transmission Date: 20050328
  Serious: Yes (Disabling)
  Sender: FDA-Public Use
  Company Number: 200413662JP

PATIENT
  Age: 62 Year
  Sex: Female
  Weight: 47 kg

DRUGS (5)
  1. LASIX [Suspect]
     Indication: OEDEMA PERIPHERAL
     Route: 048
     Dates: start: 20041104, end: 20041129
  2. PREDNIN [Concomitant]
     Indication: CONDITION AGGRAVATED
     Route: 048
     Dates: start: 20041104, end: 20041129
  3. PREDNIN [Concomitant]
     Indication: MUSCULOSKELETAL PAIN
     Route: 048
     Dates: start: 20041104, end: 20041129
  4. FAMOTIDINE [Concomitant]
     Indication: STEROID THERAPY
     Route: 048
     Dates: start: 20041125, end: 20041129
  5. MUCOSTA [Concomitant]
     Indication: STEROID THERAPY
     Route: 048
     Dates: start: 20041125, end: 20041129

REACTIONS (3)
  - DRUG ERUPTION [None]
  - JAUNDICE [None]
  - LIVER DISORDER [None]
